FAERS Safety Report 5127439-3 (Version None)
Quarter: 2006Q4

REPORT INFORMATION
  Report Type: 
  Country: None (occurrence: None)
  Receive Date: 20061013
  Receipt Date: 20061013
  Transmission Date: 20070319
  Serious: Yes (Death, Hospitalization)
  Sender: FDA-Public Use
  Company Number: None

PATIENT
  Sex: Female
  Weight: 60.8 kg

DRUGS (3)
  1. CYCLOPHOSPHAMIDE [Suspect]
     Dosage: 900 MG
     Dates: end: 20060724
  2. DOXORUBICIN HYDROCHLORIDE [Suspect]
     Dosage: 91 MG
     Dates: end: 20060724
  3. TAXOL [Suspect]
     Dosage: 275 MG
     Dates: end: 20060807

REACTIONS (6)
  - DIFFUSE ALVEOLAR DAMAGE [None]
  - LUNG INFILTRATION [None]
  - PNEUMONIA [None]
  - RESPIRATORY ACIDOSIS [None]
  - RESPIRATORY FAILURE [None]
  - SEPSIS [None]
